FAERS Safety Report 4485002-1 (Version None)
Quarter: 2004Q3

REPORT INFORMATION
  Report Type: 
  Country: None (occurrence: None)
  Receive Date: 20040921
  Receipt Date: 20030820
  Transmission Date: 20050211
  Serious: Yes (Hospitalization)
  Sender: FDA-Public Use
  Company Number: 163-20785-03080625

PATIENT
  Age: 61 Year
  Sex: Female

DRUGS (15)
  1. THALOMID [Suspect]
     Indication: MULTIPLE MYELOMA
     Dosage: ORAL; SEE IMAGE
     Route: 048
     Dates: start: 20011017, end: 20011020
  2. THALOMID [Suspect]
     Indication: MULTIPLE MYELOMA
     Dosage: ORAL; SEE IMAGE
     Route: 048
     Dates: start: 20020528, end: 20020531
  3. THALOMID [Suspect]
     Indication: MULTIPLE MYELOMA
     Dosage: ORAL; SEE IMAGE
     Route: 048
     Dates: start: 20011130
  4. THALOMID [Suspect]
     Indication: MULTIPLE MYELOMA
     Dosage: ORAL; SEE IMAGE
     Route: 048
     Dates: start: 20020312
  5. THALOMID [Suspect]
     Indication: MULTIPLE MYELOMA
     Dosage: ORAL; SEE IMAGE
     Route: 048
     Dates: start: 20020703
  6. DEXAMETHASONE [Suspect]
     Indication: MULTIPLE MYELOMA
     Dosage: ORAL; SEE IMAGE
     Route: 048
     Dates: start: 20011017, end: 20011020
  7. DEXAMETHASONE [Suspect]
     Indication: MULTIPLE MYELOMA
     Dosage: ORAL; SEE IMAGE
     Route: 048
     Dates: start: 20020528, end: 20020521
  8. DEXAMETHASONE [Suspect]
     Indication: MULTIPLE MYELOMA
     Dosage: ORAL; SEE IMAGE
     Route: 048
     Dates: start: 20011130
  9. DEXAMETHASONE [Suspect]
     Indication: MULTIPLE MYELOMA
     Dosage: ORAL; SEE IMAGE
     Route: 048
     Dates: start: 20020312
  10. DEXAMETHASONE [Suspect]
     Indication: MULTIPLE MYELOMA
     Dosage: ORAL; SEE IMAGE
     Route: 048
     Dates: start: 20020730
  11. CISPLATIN [Concomitant]
  12. ADRIAMYCIN PFS [Concomitant]
  13. CYCLOPHOSPHAMIDE [Concomitant]
  14. ETOPOSIDE [Concomitant]
  15. MELPHALAN (MELPHALAN) [Concomitant]

REACTIONS (2)
  - ABDOMINAL PAIN [None]
  - DIVERTICULAR PERFORATION [None]
